FAERS Safety Report 6336573-1 (Version None)
Quarter: 2009Q3

REPORT INFORMATION
  Report Type: 
  Country: None (occurrence: None)
  Receive Date: 20090901
  Receipt Date: 20090826
  Transmission Date: 20100115
  Serious: Yes (Hospitalization)
  Sender: FDA-Public Use
  Company Number: US-GENENTECH-289285

PATIENT
  Sex: Female
  Weight: 62.812 kg

DRUGS (1)
  1. BEVACIZUMAB [Suspect]
     Indication: BREAST CANCER

REACTIONS (1)
  - BRAIN OEDEMA [None]
